FAERS Safety Report 5093299-2 (Version None)
Quarter: 2006Q3

REPORT INFORMATION
  Report Type: 
  Country: None (occurrence: None)
  Receive Date: 20060828
  Receipt Date: 20060816
  Transmission Date: 20061208
  Serious: Yes (Life-Threatening, Hospitalization)
  Sender: FDA-Public Use
  Company Number: 060817-0000767

PATIENT
  Age: 54 Year
  Sex: Male

DRUGS (10)
  1. TRANXENE [Suspect]
     Indication: ABNORMAL BEHAVIOUR
     Dosage: SEE IMAGE
     Route: 048
     Dates: end: 20060718
  2. TRANXENE [Suspect]
     Indication: ABNORMAL BEHAVIOUR
     Dosage: SEE IMAGE
     Route: 048
     Dates: start: 20060720
  3. DEPAKOTE [Suspect]
     Indication: ABNORMAL BEHAVIOUR
     Dosage: 500 MG; QID; PO
     Route: 048
     Dates: start: 20060712, end: 20060718
  4. TIAPRIDE (TIAPRIDE) [Suspect]
     Indication: ABNORMAL BEHAVIOUR
     Dosage: SEE IMAGE
     Route: 048
     Dates: end: 20060711
  5. TIAPRIDE (TIAPRIDE) [Suspect]
     Indication: ABNORMAL BEHAVIOUR
     Dosage: SEE IMAGE
     Route: 048
     Dates: start: 20060712, end: 20060718
  6. ASPIRIN [Concomitant]
  7. NULYTELY [Concomitant]
  8. PRAVASTATIN SODIUM [Concomitant]
  9. VALPROMIDE [Concomitant]
  10. CYAMEMAZINE [Concomitant]

REACTIONS (5)
  - ACUTE RESPIRATORY DISTRESS SYNDROME [None]
  - ANTICONVULSANT DRUG LEVEL INCREASED [None]
  - DEPRESSED LEVEL OF CONSCIOUSNESS [None]
  - DRUG INTERACTION [None]
  - HYPOTENSION [None]
